FAERS Safety Report 20604806 (Version 3)
Quarter: 2023Q2

REPORT INFORMATION
  Report Type: Report from Study
  Country: JP (occurrence: JP)
  Receive Date: 20220317
  Receipt Date: 20230610
  Transmission Date: 20230721
  Serious: Yes (Other)
  Sender: FDA-Public Use
  Company Number: JP-KYOWAKIRIN-2022AKK003548

PATIENT
  Sex: Male

DRUGS (13)
  1. ROMIPLOSTIM [Suspect]
     Active Substance: ROMIPLOSTIM
     Indication: Aplastic anaemia
     Dosage: 500 UG, 1X/WEEK
     Route: 058
     Dates: start: 20191120, end: 20191127
  2. ROMIPLOSTIM [Suspect]
     Active Substance: ROMIPLOSTIM
     Dosage: 750 UG, 1X/WEEK
     Route: 058
     Dates: start: 20191204, end: 20191227
  3. ROMIPLOSTIM [Suspect]
     Active Substance: ROMIPLOSTIM
     Dosage: 1000 UG
     Route: 058
     Dates: start: 20200106, end: 20200106
  4. ROMIPLOSTIM [Suspect]
     Active Substance: ROMIPLOSTIM
     Dosage: 1000 UG, 1X/WEEK
     Route: 058
     Dates: start: 20200115, end: 20200311
  5. ROMIPLOSTIM [Suspect]
     Active Substance: ROMIPLOSTIM
     Dosage: 750 UG, 1X/WEEK
     Route: 058
     Dates: start: 20200318, end: 20200325
  6. ROMIPLOSTIM [Suspect]
     Active Substance: ROMIPLOSTIM
     Dosage: 500 UG, 1X/WEEK
     Route: 058
     Dates: start: 20200401, end: 20200408
  7. ROMIPLOSTIM [Suspect]
     Active Substance: ROMIPLOSTIM
     Dosage: 250 UG, 1X/WEEK
     Route: 058
     Dates: start: 20200415, end: 20200611
  8. ROMIPLOSTIM [Suspect]
     Active Substance: ROMIPLOSTIM
     Dosage: 250 UG, 1X/2WEEK
     Route: 058
     Dates: start: 20200622, end: 20210621
  9. ROMIPLOSTIM [Suspect]
     Active Substance: ROMIPLOSTIM
     Dosage: 250 UG, 1X/3WEEK
     Route: 058
     Dates: start: 20210712, end: 20210802
  10. ROMIPLOSTIM [Suspect]
     Active Substance: ROMIPLOSTIM
     Dosage: 250 UG
     Route: 058
     Dates: start: 20210817, end: 20210817
  11. ROMIPLOSTIM [Suspect]
     Active Substance: ROMIPLOSTIM
     Dosage: 250 UG, 1X/2WEEK
     Route: 058
     Dates: start: 20210907
  12. NEORAL [Concomitant]
     Active Substance: CYCLOSPORINE
     Indication: Aplastic anaemia
     Dosage: UNK
     Route: 048
  13. ELTROMBOPAG OLAMINE [Concomitant]
     Active Substance: ELTROMBOPAG OLAMINE
     Indication: Aplastic anaemia
     Dosage: UNK
     Route: 048

REACTIONS (3)
  - Chronic myeloid leukaemia [Unknown]
  - Myelodysplastic syndrome [Unknown]
  - Basophil count increased [Unknown]

NARRATIVE: CASE EVENT DATE: 20220301
